FAERS Safety Report 5314362-4 (Version None)
Quarter: 2007Q2

REPORT INFORMATION
  Report Type: 
  Country: None (occurrence: None)
  Receive Date: 20070502
  Receipt Date: 20070423
  Transmission Date: 20071010
  Serious: Yes (Hospitalization)
  Sender: FDA-Public Use
  Company Number: PHBS2007FI06085

PATIENT
  Age: 58 Year
  Sex: Female

DRUGS (7)
  1. CLOZAPINE [Suspect]
     Indication: SCHIZOPHRENIA, PARANOID TYPE
     Dosage: 300 MG/DAY
     Route: 048
     Dates: start: 20061124, end: 20070131
  2. AMARYL [Concomitant]
     Indication: DIABETES MELLITUS NON-INSULIN-DEPENDENT
     Dosage: 2 MG/DAY
  3. DIFORMIN [Concomitant]
     Indication: DIABETES MELLITUS NON-INSULIN-DEPENDENT
     Dosage: 2000 MG/DAY
  4. SIMVASTATIN [Concomitant]
     Dosage: 20 MG/DAY
     Dates: end: 20070213
  5. PROTAPHAN [Concomitant]
     Dosage: 54 IU/DAY
  6. PROTAPHAN [Concomitant]
     Dosage: 40 IU/D
  7. DUREKAL [Concomitant]
     Dosage: 1 G, TID

REACTIONS (16)
  - AGRANULOCYTOSIS [None]
  - ALANINE AMINOTRANSFERASE INCREASED [None]
  - BLOOD ALKALINE PHOSPHATASE INCREASED [None]
  - BLOOD SODIUM DECREASED [None]
  - C-REACTIVE PROTEIN INCREASED [None]
  - DECREASED APPETITE [None]
  - DIARRHOEA [None]
  - ENTEROCOCCAL INFECTION [None]
  - GASTROINTESTINAL INFLAMMATION [None]
  - GENERAL PHYSICAL HEALTH DETERIORATION [None]
  - INVESTIGATION ABNORMAL [None]
  - IRON DEFICIENCY ANAEMIA [None]
  - LEUKOPENIA [None]
  - NEUTROPENIA [None]
  - OEDEMA [None]
  - PYREXIA [None]
